FAERS Safety Report 9123311 (Version 1)
Quarter: 2013Q1

REPORT INFORMATION
  Report Type: Spontaneous
  Country: NZ (occurrence: NZ)
  Receive Date: 20130227
  Receipt Date: 20130227
  Transmission Date: 20140127
  Serious: Yes (Hospitalization)
  Sender: FDA-Public Use
  Company Number: NZ-ROCHE-1195818

PATIENT
  Sex: Female

DRUGS (6)
  1. RITUXIMAB [Suspect]
     Indication: RHEUMATOID ARTHRITIS
     Route: 065
  2. BRUFEN [Concomitant]
     Route: 065
  3. BRUFEN [Concomitant]
     Route: 065
  4. PANADOL [Concomitant]
  5. PREDNISONE [Concomitant]
     Route: 065
  6. ARAVA [Concomitant]

REACTIONS (6)
  - Pyrexia [Unknown]
  - Abdominal pain [Unknown]
  - Eye pain [Unknown]
  - Photosensitivity reaction [Unknown]
  - Crohn^s disease [Not Recovered/Not Resolved]
  - Uveitis [Unknown]
